FAERS Safety Report 9170490 (Version 2)
Quarter: 2013Q2

REPORT INFORMATION
  Report Type: Spontaneous
  Country: US (occurrence: None)
  Receive Date: 20130307
  Receipt Date: 20130422
  Transmission Date: 20140414
  Serious: Yes (Other)
  Sender: FDA-Public Use
  Company Number: A1013775A

PATIENT
  Age: 61 Year
  Sex: Female

DRUGS (2)
  1. CALCIUM CARBONATE (FORMULATION UNKNOWN) (CALCIUM CARBONATE) [Suspect]
     Indication: DYSPEPSIA
  2. MIGRAINE MEDICATION [Suspect]
     Indication: MIGRAINE

REACTIONS (8)
  - Hypersensitivity [None]
  - Drug administration error [None]
  - Malaise [None]
  - Drug interaction [None]
  - Rash [None]
  - Throat tightness [None]
  - Intentional drug misuse [None]
  - Poisoning [None]
